FAERS Safety Report 7828555-5 (Version None)
Quarter: 2011Q4

REPORT INFORMATION
  Report Type: 
  Country: None (occurrence: None)
  Receive Date: 20111020
  Receipt Date: 20111020
  Transmission Date: 20120403
  Serious: Yes (Hospitalization, Other)
  Sender: FDA-Public Use
  Company Number: None

PATIENT
  Age: 17 Year
  Sex: Female
  Weight: 68.038 kg

DRUGS (1)
  1. FLUOXETINE [Suspect]
     Indication: DEPRESSION

REACTIONS (11)
  - EATING DISORDER [None]
  - TREMOR [None]
  - SENSORY LOSS [None]
  - LOSS OF CONSCIOUSNESS [None]
  - FALL [None]
  - SCREAMING [None]
  - CONFUSIONAL STATE [None]
  - AMNESIA [None]
  - EPILEPSY [None]
  - ABDOMINAL PAIN UPPER [None]
  - ERYTHEMA [None]
